FAERS Safety Report 5412863-1 (Version None)
Quarter: 2007Q3

REPORT INFORMATION
  Report Type: 
  Country: None (occurrence: None)
  Receive Date: 20070713
  Receipt Date: 20070514
  Transmission Date: 20080115
  Serious: No
  Sender: FDA-Public Use
  Company Number: 2007SP001770

PATIENT
  Age: 73 Year
  Sex: Male
  Weight: 68.0396 kg

DRUGS (4)
  1. LUNESTA [Suspect]
     Indication: INSOMNIA
     Dosage: 2 MG; ORAL
     Route: 048
     Dates: start: 20070101
  2. ATORVASTATIN CALCIUM [Concomitant]
  3. CARDIZEM [Concomitant]
  4. HYTRIN [Concomitant]

REACTIONS (4)
  - DEPRESSION [None]
  - DIZZINESS [None]
  - DYSGEUSIA [None]
  - SOMNOLENCE [None]
